FAERS Safety Report 4775480-2 (Version None)
Quarter: 2005Q3

REPORT INFORMATION
  Report Type: 
  Country: None (occurrence: None)
  Receive Date: 20050920
  Receipt Date: 20050907
  Transmission Date: 20060218
  Serious: Yes (Disabling)
  Sender: FDA-Public Use
  Company Number: HQWYE337109SEP05

PATIENT

DRUGS (1)
  1. EFFEXOR XR [Suspect]
     Dosage: ^OPENING UP EACH 37.5 MG CAPSULE AND THEN TAKING 1/3 EVERY OTHER DAY^
     Dates: end: 20050318

REACTIONS (11)
  - ASTHENIA [None]
  - COLD SWEAT [None]
  - DIZZINESS [None]
  - DRUG DEPENDENCE [None]
  - DRUG WITHDRAWAL SYNDROME [None]
  - FEELING ABNORMAL [None]
  - IMPAIRED WORK ABILITY [None]
  - MALAISE [None]
  - NAUSEA [None]
  - VISUAL DISTURBANCE [None]
  - WEIGHT INCREASED [None]
